FAERS Safety Report 9004353 (Version 4)
Quarter: 2013Q4

REPORT INFORMATION
  Report Type: Spontaneous
  Country: US (occurrence: US)
  Receive Date: 20130108
  Receipt Date: 20131203
  Transmission Date: 20140711
  Serious: Yes (Other)
  Sender: FDA-Public Use
  Company Number: US-ASTELLAS-2013US000013

PATIENT
  Age: 76 Year
  Sex: Male
  Weight: 93 kg

DRUGS (5)
  1. MYRBETRIQ [Suspect]
     Indication: URINARY INCONTINENCE
     Dosage: 25 MG, UNKNOWN/D
     Route: 048
     Dates: start: 20130320, end: 20131105
  2. MYRBETRIQ [Suspect]
     Indication: POLLAKIURIA
     Dosage: 50 MG, UID/QD
     Route: 048
     Dates: end: 20131105
  3. LIPITOR [Concomitant]
     Indication: PRODUCT USED FOR UNKNOWN INDICATION
     Dosage: UNK
     Route: 065
  4. LISINOPRIL [Concomitant]
     Indication: PRODUCT USED FOR UNKNOWN INDICATION
     Dosage: UNK
     Route: 065
  5. AVODART [Concomitant]
     Indication: PRODUCT USED FOR UNKNOWN INDICATION
     Dosage: UNK
     Route: 065

REACTIONS (9)
  - Drug ineffective [Not Recovered/Not Resolved]
  - Dysphagia [Unknown]
  - Sinusitis [Recovering/Resolving]
  - Urinary retention [Unknown]
  - Incontinence [Unknown]
  - Oropharyngeal pain [Not Recovered/Not Resolved]
  - Headache [Recovered/Resolved]
  - Nasal congestion [Unknown]
  - Rhinorrhoea [Not Recovered/Not Resolved]
